FAERS Safety Report 5200312-8 (Version None)
Quarter: 2007Q1

REPORT INFORMATION
  Report Type: 
  Country: None (occurrence: None)
  Receive Date: 20070105
  Receipt Date: 20061229
  Transmission Date: 20070707
  Serious: Yes (Death, Life-Threatening, Other)
  Sender: FDA-Public Use
  Company Number: JP-PFIZER INC-2006141340

PATIENT
  Sex: Female
  Weight: 53 kg

DRUGS (5)
  1. METHYLPREDNISOLONE SODIUM SUCCINATE [Suspect]
     Indication: INTERSTITIAL LUNG DISEASE
     Route: 042
  2. PREDONINE [Suspect]
     Indication: INTERSTITIAL LUNG DISEASE
     Route: 048
     Dates: start: 20051019, end: 20051128
  3. PREDONINE [Suspect]
     Indication: LYMPHANGIOSIS CARCINOMATOSA
  4. IRINOTECAN HYDROCHLORIDE SOLUTION, STERILE [Suspect]
     Indication: OVARIAN CANCER RECURRENT
     Route: 042
     Dates: start: 20050930, end: 20051121
  5. CISPLATIN [Concomitant]
     Indication: OVARIAN CANCER RECURRENT
     Route: 042
     Dates: start: 20050930, end: 20051102

REACTIONS (13)
  - ABDOMINAL DISTENSION [None]
  - ASCITES [None]
  - C-REACTIVE PROTEIN INCREASED [None]
  - CEREBRAL INFARCTION [None]
  - DIARRHOEA [None]
  - HEMIPLEGIA [None]
  - INTESTINAL PERFORATION [None]
  - LYMPHANGIOSIS CARCINOMATOSA [None]
  - METASTASES TO LUNG [None]
  - NEOPLASM PROGRESSION [None]
  - PERICARDIAL EFFUSION [None]
  - PHONOLOGICAL DISORDER [None]
  - PLEURAL EFFUSION [None]
